FAERS Safety Report 12976707 (Version 11)
Quarter: 2019Q3

REPORT INFORMATION
  Report Type: Report from Study
  Country: CN (occurrence: CN)
  Receive Date: 20161128
  Receipt Date: 20190822
  Transmission Date: 20191004
  Serious: Yes (Hospitalization, Other)
  Sender: FDA-Public Use
  Company Number: PHHY2016CN159304

PATIENT
  Age: 49 Year
  Sex: Male
  Weight: 70 kg

DRUGS (79)
  1. METHYLPREDNISOLONE. [Suspect]
     Active Substance: METHYLPREDNISOLONE
     Dosage: 50 MG, QD
     Route: 065
     Dates: start: 20161001, end: 20161002
  2. TACROLIMUS. [Suspect]
     Active Substance: TACROLIMUS
     Dosage: 1 MG, QD
     Route: 065
     Dates: start: 20170119, end: 20170125
  3. GLYCERIN. [Concomitant]
     Active Substance: GLYCERIN
     Indication: CONSTIPATION
     Dosage: 110 ML, QD
     Route: 061
     Dates: start: 20160929, end: 20160929
  4. LIDOCAINE HYDROCHLORIDE. [Concomitant]
     Active Substance: LIDOCAINE HYDROCHLORIDE
     Indication: ANAESTHESIA
     Dosage: 5 ML, QD
     Route: 042
     Dates: start: 20160930, end: 20160930
  5. MANNITOL. [Concomitant]
     Active Substance: MANNITOL
     Indication: POLYURIA
     Dosage: 250 ML, QD
     Route: 042
     Dates: start: 20160930, end: 20160930
  6. SODIUM LACTATE. [Concomitant]
     Active Substance: SODIUM LACTATE
     Dosage: 500 ML, BID
     Route: 042
     Dates: start: 20161006, end: 20161006
  7. MYFORTIC [Suspect]
     Active Substance: MYCOPHENOLATE SODIUM
     Dosage: 1440 MG, QD
     Route: 065
     Dates: start: 20161010, end: 20161019
  8. MYFORTIC [Suspect]
     Active Substance: MYCOPHENOLATE SODIUM
     Dosage: 360 MG, QD
     Route: 048
     Dates: start: 20170604, end: 20170711
  9. METHYLPREDNISOLONE. [Suspect]
     Active Substance: METHYLPREDNISOLONE
     Indication: PRODUCT USED FOR UNKNOWN INDICATION
     Dosage: 50 MG, QD
     Route: 065
     Dates: start: 20160930, end: 20160930
  10. PREDNISONE. [Suspect]
     Active Substance: PREDNISONE
     Dosage: 21 MG, QD
     Route: 065
     Dates: start: 20160126, end: 20170329
  11. TACROLIMUS. [Suspect]
     Active Substance: TACROLIMUS
     Dosage: 4 MG, QD
     Route: 065
     Dates: start: 20170112, end: 20170118
  12. GENTAMYCIN SULFATE [Concomitant]
     Active Substance: GENTAMICIN SULFATE
     Indication: PROPHYLAXIS
     Dosage: 16 IU, QD
     Route: 042
     Dates: start: 20160930, end: 20160930
  13. TRAMADOL HYDROCHLORIDE. [Concomitant]
     Active Substance: TRAMADOL HYDROCHLORIDE
     Indication: PAIN
     Dosage: 0.1 G, QD
     Route: 042
     Dates: start: 20160930, end: 20160930
  14. MYFORTIC [Suspect]
     Active Substance: MYCOPHENOLATE SODIUM
     Dosage: 360 MG, QD
     Route: 065
     Dates: start: 20161229, end: 20170111
  15. MYFORTIC [Suspect]
     Active Substance: MYCOPHENOLATE SODIUM
     Dosage: 1080 MG, QD
     Route: 065
     Dates: start: 20170126, end: 20170507
  16. PREDNISONE. [Suspect]
     Active Substance: PREDNISONE
     Dosage: 17 MG, QD
     Route: 065
     Dates: start: 20170330
  17. TACROLIMUS. [Suspect]
     Active Substance: TACROLIMUS
     Indication: PRODUCT USED FOR UNKNOWN INDICATION
     Dosage: 7 MG, QD
     Route: 065
     Dates: start: 20160930, end: 20160930
  18. TACROLIMUS. [Suspect]
     Active Substance: TACROLIMUS
     Dosage: 8.5 MG, QD
     Route: 065
     Dates: start: 20161008, end: 20161010
  19. TACROLIMUS. [Suspect]
     Active Substance: TACROLIMUS
     Dosage: 8 MG, QD
     Route: 065
     Dates: start: 20161011, end: 20161012
  20. CEFOXITIN SODIUM [Concomitant]
     Active Substance: CEFOXITIN SODIUM
     Indication: INFECTION PROPHYLAXIS
     Dosage: 2 G, QD
     Route: 065
     Dates: start: 20160929, end: 20160929
  21. CALCIUM GLUCONATE. [Concomitant]
     Active Substance: CALCIUM GLUCONATE
     Dosage: 30 ML, BID
     Route: 042
     Dates: start: 20161009, end: 20161009
  22. CEFOXITIN [Concomitant]
     Active Substance: CEFOXITIN SODIUM
     Dosage: 2 G, TID
     Route: 042
     Dates: start: 20160930, end: 20160930
  23. FENTANYL CITRATE. [Concomitant]
     Active Substance: FENTANYL CITRATE
     Indication: ANAESTHESIA
     Dosage: 100 UG, QD
     Route: 042
     Dates: start: 20160930, end: 20160930
  24. GANCICLOVIR. [Concomitant]
     Active Substance: GANCICLOVIR
     Dosage: 0.25 G, Q12H
     Route: 065
  25. METOPROLOL TARTRATE. [Concomitant]
     Active Substance: METOPROLOL TARTRATE
     Indication: BLOOD PRESSURE INCREASED
     Dosage: 25 MG, QD
     Route: 048
     Dates: start: 20161002, end: 20161002
  26. POTASSIUM CHLORIDE. [Concomitant]
     Active Substance: POTASSIUM CHLORIDE
     Indication: PRODUCT USED FOR UNKNOWN INDICATION
     Dosage: 1 G, TID
     Route: 048
     Dates: start: 20161004
  27. SODIUM BICARBONATE. [Concomitant]
     Active Substance: SODIUM BICARBONATE
     Indication: HYPERCHLORHYDRIA
     Dosage: 250 ML, QD
     Route: 042
     Dates: start: 20160930, end: 20160930
  28. SODIUM LACTATE. [Concomitant]
     Active Substance: SODIUM LACTATE
     Dosage: 500 ML, 5 TIMES
     Route: 042
     Dates: start: 20160930, end: 20160930
  29. SODIUM LACTATE. [Concomitant]
     Active Substance: SODIUM LACTATE
     Dosage: 500 ML, 2 TIMES
     Route: 042
     Dates: start: 20161001, end: 20161001
  30. SODIUM LACTATE. [Concomitant]
     Active Substance: SODIUM LACTATE
     Dosage: 500 ML, BID
     Route: 042
     Dates: start: 20161004, end: 20161004
  31. SODIUM LACTATE. [Concomitant]
     Active Substance: SODIUM LACTATE
     Dosage: 500 ML, QD
     Route: 042
     Dates: start: 20161007, end: 20161007
  32. MYFORTIC [Suspect]
     Active Substance: MYCOPHENOLATE SODIUM
     Dosage: 1080 MG, QD
     Route: 048
     Dates: start: 20170508, end: 20170603
  33. TACROLIMUS. [Suspect]
     Active Substance: TACROLIMUS
     Dosage: 9 MG, QD
     Route: 065
     Dates: start: 20161006, end: 20161006
  34. TACROLIMUS. [Suspect]
     Active Substance: TACROLIMUS
     Dosage: 8 MG, QD
     Route: 065
     Dates: start: 20161007, end: 20161007
  35. TACROLIMUS. [Suspect]
     Active Substance: TACROLIMUS
     Dosage: 4 MG, QD
     Route: 065
     Dates: start: 20170116, end: 20170329
  36. INSULIN [Concomitant]
     Active Substance: INSULIN NOS
     Dosage: 6 U, 4TIMES/D
     Route: 042
     Dates: start: 20160930, end: 20160930
  37. INSULIN [Concomitant]
     Active Substance: INSULIN NOS
     Dosage: 6 U, 7TIMES/D
     Route: 042
     Dates: start: 20161001, end: 20161001
  38. NICARDIPINE HYDROCHLORIDE. [Concomitant]
     Active Substance: NICARDIPINE HYDROCHLORIDE
     Indication: BLOOD PRESSURE INCREASED
     Dosage: 40 MG, BID
     Route: 048
     Dates: start: 20161008
  39. NIFEDIPINE. [Concomitant]
     Active Substance: NIFEDIPINE
     Indication: BLOOD PRESSURE INCREASED
     Dosage: 30 MG, BID
     Route: 048
     Dates: start: 20161002
  40. MYFORTIC [Suspect]
     Active Substance: MYCOPHENOLATE SODIUM
     Dosage: 2340 MG, QD
     Route: 065
     Dates: start: 20161009, end: 20161009
  41. METHYLPREDNISOLONE. [Suspect]
     Active Substance: METHYLPREDNISOLONE
     Dosage: 50 MG, QD
     Route: 065
     Dates: start: 20161007, end: 20161007
  42. METHYLPREDNISOLONE. [Suspect]
     Active Substance: METHYLPREDNISOLONE
     Dosage: 40 MG, QD
     Route: 065
     Dates: start: 20170506, end: 20170528
  43. TACROLIMUS. [Suspect]
     Active Substance: TACROLIMUS
     Dosage: 8 MG, QD
     Route: 065
     Dates: start: 20161020, end: 20170111
  44. TACROLIMUS. [Suspect]
     Active Substance: TACROLIMUS
     Dosage: 6 MG, QD
     Route: 065
     Dates: start: 20170330
  45. CEFOXITIN [Concomitant]
     Active Substance: CEFOXITIN SODIUM
     Indication: INFECTION PROPHYLAXIS
     Dosage: 2 G, QD
     Route: 042
     Dates: start: 20160929, end: 20160929
  46. HEPARIN SODIUM. [Concomitant]
     Active Substance: HEPARIN SODIUM
     Indication: PRODUCT USED FOR UNKNOWN INDICATION
     Dosage: 25000 IU, QD
     Route: 042
     Dates: start: 20160930, end: 20160930
  47. INSULIN [Concomitant]
     Active Substance: INSULIN NOS
     Indication: BLOOD GLUCOSE INCREASED
     Dosage: 6 U, 11 TIMES/D
     Route: 042
     Dates: start: 20160930, end: 20160930
  48. PROPOFOL. [Concomitant]
     Active Substance: PROPOFOL
     Indication: ANAESTHESIA
     Dosage: 0.2 G, QD
     Route: 042
     Dates: start: 20160930, end: 20160930
  49. SODIUM LACTATE. [Concomitant]
     Active Substance: SODIUM LACTATE
     Indication: PRODUCT USED FOR UNKNOWN INDICATION
     Dosage: 500 ML, 12 TIMES
     Route: 042
     Dates: start: 20160930, end: 20160930
  50. MYFORTIC [Suspect]
     Active Substance: MYCOPHENOLATE SODIUM
     Dosage: 2160 MG, QD
     Route: 065
     Dates: start: 20161020, end: 20161228
  51. MYFORTIC [Suspect]
     Active Substance: MYCOPHENOLATE SODIUM
     Dosage: 1440 MG, QD
     Route: 065
     Dates: start: 20170830
  52. TACROLIMUS. [Suspect]
     Active Substance: TACROLIMUS
     Dosage: 11 MG, QD
     Route: 065
     Dates: start: 20161013, end: 20161019
  53. ATROPINE SULFATE. [Concomitant]
     Active Substance: ATROPINE SULFATE
     Indication: PRODUCT USED FOR UNKNOWN INDICATION
     Dosage: 2 MG, QD
     Route: 058
     Dates: start: 20160930, end: 20160930
  54. CALCIUM GLUCONATE. [Concomitant]
     Active Substance: CALCIUM GLUCONATE
     Dosage: 10 ML, TID
     Route: 042
     Dates: start: 20161006, end: 20161006
  55. PANTOPRAZOLE SODIUM. [Concomitant]
     Active Substance: PANTOPRAZOLE SODIUM
     Dosage: 40 MG, BID
     Route: 042
     Dates: start: 20161001
  56. SODIUM BICARBONATE. [Concomitant]
     Active Substance: SODIUM BICARBONATE
     Dosage: 125 ML, QD
     Route: 042
     Dates: start: 20161011, end: 20161011
  57. TROPISETRON HYDROCHLORIDE [Concomitant]
     Active Substance: TROPISETRON HYDROCHLORIDE
     Indication: ANAESTHESIA
     Dosage: 15 MG, QD
     Route: 042
     Dates: start: 20160930, end: 20160930
  58. MYFORTIC [Suspect]
     Active Substance: MYCOPHENOLATE SODIUM
     Dosage: 1080 MG, QD
     Route: 065
     Dates: start: 20170112, end: 20170125
  59. BASILIXIMAB [Suspect]
     Active Substance: BASILIXIMAB
     Indication: RENAL TRANSPLANT
     Dosage: 20 MG, QD
     Route: 065
     Dates: start: 20160929, end: 20160929
  60. PREDNISONE. [Suspect]
     Active Substance: PREDNISONE
     Indication: PRODUCT USED FOR UNKNOWN INDICATION
     Dosage: 30 MG, QD
     Route: 065
     Dates: start: 20161003, end: 20161003
  61. PREDNISONE. [Suspect]
     Active Substance: PREDNISONE
     Dosage: 35 MG, QD
     Route: 065
     Dates: start: 20161020, end: 20170125
  62. TACROLIMUS. [Suspect]
     Active Substance: TACROLIMUS
     Dosage: 7 MG, QD
     Route: 065
     Dates: start: 20161001, end: 20161005
  63. CALCIUM CHLORIDE. [Concomitant]
     Active Substance: CALCIUM CHLORIDE
     Indication: PRODUCT USED FOR UNKNOWN INDICATION
     Dosage: 20 ML, QD
     Route: 042
     Dates: start: 20160930, end: 20160930
  64. CALCIUM GLUCONATE. [Concomitant]
     Active Substance: CALCIUM GLUCONATE
     Indication: PRODUCT USED FOR UNKNOWN INDICATION
     Dosage: 10 ML, QD
     Route: 042
     Dates: start: 20161001, end: 20161012
  65. CEFOPERAZONE + SULBACTAM [Concomitant]
     Active Substance: CEFOPERAZONE SODIUM\SULBACTAM
     Indication: INFECTION PROPHYLAXIS
     Dosage: 3 G, BID
     Route: 042
     Dates: start: 20161001
  66. CEFUROXIME AXETIL. [Concomitant]
     Active Substance: CEFUROXIME AXETIL
     Indication: INFECTION PROPHYLAXIS
     Dosage: 0.25 G, BID
     Route: 048
     Dates: start: 20161013, end: 20161013
  67. FUROSEMIDE. [Concomitant]
     Active Substance: FUROSEMIDE
     Indication: POLYURIA
     Dosage: 80 MG, QD
     Route: 042
     Dates: start: 20160930, end: 20160930
  68. SODIUM BICARBONATE. [Concomitant]
     Active Substance: SODIUM BICARBONATE
     Indication: HYPERCHLORHYDRIA
     Dosage: 0.5 G, TID
     Route: 048
     Dates: start: 20161011
  69. MYFORTIC [Suspect]
     Active Substance: MYCOPHENOLATE SODIUM
     Indication: RENAL TRANSPLANT
     Dosage: 1440 MG, QD
     Route: 065
     Dates: start: 20160930, end: 20160930
  70. MYFORTIC [Suspect]
     Active Substance: MYCOPHENOLATE SODIUM
     Dosage: 1440 MG, QD
     Route: 065
     Dates: start: 20161001, end: 20161008
  71. MYFORTIC [Suspect]
     Active Substance: MYCOPHENOLATE SODIUM
     Dosage: 1440 MG, QD
     Route: 065
     Dates: start: 20170712, end: 20170829
  72. BASILIXIMAB [Suspect]
     Active Substance: BASILIXIMAB
     Dosage: 20 MG, QD
     Route: 065
     Dates: start: 20161004, end: 20161004
  73. PREDNISONE. [Suspect]
     Active Substance: PREDNISONE
     Dosage: 30 MG, QD
     Route: 065
     Dates: start: 20161004, end: 20161019
  74. GANCICLOVIR. [Concomitant]
     Active Substance: GANCICLOVIR
     Indication: PROPHYLAXIS
     Dosage: 0.5 G, BID
     Route: 048
     Dates: start: 20161013, end: 20161013
  75. PANTOPRAZOLE SODIUM. [Concomitant]
     Active Substance: PANTOPRAZOLE SODIUM
     Indication: GASTRITIS PROPHYLAXIS
     Dosage: 40 MG, TID
     Route: 042
     Dates: start: 20160930, end: 20160930
  76. POTASSIUM CHLORIDE. [Concomitant]
     Active Substance: POTASSIUM CHLORIDE
     Indication: PRODUCT USED FOR UNKNOWN INDICATION
     Dosage: 10 ML, QD
     Route: 042
     Dates: start: 20161001, end: 20161001
  77. REMIFENTANIL HYDROCHLORIDE. [Concomitant]
     Active Substance: REMIFENTANIL HYDROCHLORIDE
     Indication: ANAESTHESIA
     Dosage: 2 MG, QD
     Route: 042
     Dates: start: 20160930, end: 20160930
  78. ROCURONIUM BROMIDE. [Concomitant]
     Active Substance: ROCURONIUM BROMIDE
     Indication: ANAESTHESIA
     Dosage: 100 MG, QD
     Route: 042
     Dates: start: 20160930, end: 20160930
  79. SULFADIAZINE. [Concomitant]
     Active Substance: SULFADIAZINE
     Indication: INFECTION PROPHYLAXIS
     Dosage: 0.96 G, BID
     Route: 048
     Dates: start: 20161013, end: 20161013

REACTIONS (17)
  - Pneumocystis jirovecii pneumonia [Recovered/Resolved]
  - Diarrhoea [Recovered/Resolved]
  - Chest discomfort [Recovered/Resolved]
  - Pyrexia [Recovered/Resolved]
  - Blood glucose increased [Unknown]
  - Blood albumin decreased [Unknown]
  - Bilirubin conjugated increased [Unknown]
  - Dyspnoea [Recovered/Resolved]
  - Lymphocyte count decreased [Unknown]
  - Platelet count decreased [Unknown]
  - Hypocalcaemia [Recovering/Resolving]
  - Leukopenia [Recovered/Resolved]
  - Haemoglobin decreased [Unknown]
  - Protein urine present [Unknown]
  - Osteoporosis [Not Recovered/Not Resolved]
  - Red blood cells urine positive [Unknown]
  - Low density lipoprotein increased [Unknown]

NARRATIVE: CASE EVENT DATE: 20161003
